FAERS Safety Report 15230731 (Version 2)
Quarter: 2018Q4

REPORT INFORMATION
  Report Type: Report from Study
  Country: US (occurrence: US)
  Receive Date: 20180802
  Receipt Date: 20181113
  Transmission Date: 20190204
  Serious: No
  Sender: FDA-Public Use
  Company Number: US-SA-2018SA208243

PATIENT
  Age: 31 Year
  Sex: Female

DRUGS (2)
  1. IMIGLUCERASE [Suspect]
     Active Substance: IMIGLUCERASE
     Indication: GAUCHER^S DISEASE
     Dosage: DOSE: 2000; FREQUENCY: Q4W
     Route: 041
     Dates: start: 20041209, end: 20180501
  2. IMIGLUCERASE [Suspect]
     Active Substance: IMIGLUCERASE
     Dosage: UNK UNK, Q4W
     Route: 041
     Dates: start: 20180724

REACTIONS (1)
  - Exposure during pregnancy [Recovering/Resolving]
